FAERS Safety Report 20254720 (Version 1)
Quarter: 2021Q4

REPORT INFORMATION
  Report Type: Spontaneous
  Country: DE (occurrence: DE)
  Receive Date: 20211230
  Receipt Date: 20211230
  Transmission Date: 20220303
  Serious: Yes (Hospitalization)
  Sender: FDA-Public Use
  Company Number: DE-ADRED-07332-01

PATIENT
  Age: 57 Year
  Sex: Female
  Weight: 120 kg

DRUGS (13)
  1. ALLOPURINOL [Interacting]
     Active Substance: ALLOPURINOL
     Dosage: 100 MILLIGRAM DAILY; 1-0-0-0
     Route: 048
  2. RAMIPRIL [Interacting]
     Active Substance: RAMIPRIL
     Dosage: 2.5 MILLIGRAM DAILY; 1-0-0-0
     Route: 048
  3. TORSEMIDE [Interacting]
     Active Substance: TORSEMIDE
     Dosage: 10 MG, 2-1-0-0
     Route: 048
  4. NOVORAPID [Interacting]
     Active Substance: INSULIN ASPART
     Dosage: 300 U / 3ML, 9-5-7-0, PRE-FILLED SYRINGES; NOVORAPID PENFILL 300E. 100E./ML
     Route: 058
  5. INSULIN GLARGINE [Interacting]
     Active Substance: INSULIN GLARGINE
     Dosage: 0-0-0-20, PRE-FILLED SYRINGES
     Route: 058
  6. PANCRELIPASE [Concomitant]
     Active Substance: PANCRELIPASE
     Dosage: 9 DOSAGE FORMS DAILY; 25000 IU, 3-3-3-0; KREON 25000E.
     Route: 048
  7. DALTEPARIN SODIUM [Concomitant]
     Active Substance: DALTEPARIN SODIUM
     Dosage: 1 DOSAGE FORMS DAILY; 5000 IU / 0.2ML, 0-0-1-0, PRE-FILLED SYRINGES; FRAGMIN P FORTE 5000I.U.
     Route: 058
  8. FERRO-SANOL DUODENAL [Concomitant]
     Active Substance: FERROUS GLYCINE SULFATE
     Dosage: 50 MILLIGRAM DAILY; 1-0-0-0; FERRO SANOL DUODENAL MITE 50MG
     Route: 048
  9. METOPROLOL [Concomitant]
     Active Substance: METOPROLOL
     Dosage: 95 MILLIGRAM DAILY; 1-0-1-0
     Route: 048
  10. PANTOPRAZOLE SODIUM [Concomitant]
     Active Substance: PANTOPRAZOLE SODIUM
     Dosage: 40 MILLIGRAM DAILY; 1-0-0-0
     Route: 048
  11. SIMVASTATIN [Concomitant]
     Active Substance: SIMVASTATIN
     Dosage: 40 MILLIGRAM DAILY; 0-0-1-0
     Route: 048
  12. LEVOTHYROXINE SODIUM [Concomitant]
     Active Substance: LEVOTHYROXINE SODIUM
     Dosage: 1.5 DOSAGE FORMS DAILY; 25 UG, 1.5-0-0-0; L-THYROX HEXAL 25 MICROGRAMS
     Route: 048
  13. ASPIRIN [Concomitant]
     Active Substance: ASPIRIN
     Dosage: 100 MILLIGRAM DAILY; 0-1-0-0
     Route: 048

REACTIONS (5)
  - Product monitoring error [Unknown]
  - Fracture blisters [Unknown]
  - Pain in extremity [Unknown]
  - Pain [Unknown]
  - Labelled drug-drug interaction medication error [Unknown]

NARRATIVE: CASE EVENT DATE: 20210220
